FAERS Safety Report 17085217 (Version 2)
Quarter: 2020Q1

REPORT INFORMATION
  Report Type: Report from Study
  Country: None (occurrence: US)
  Receive Date: 20191127
  Receipt Date: 20200330
  Transmission Date: 20200409
  Serious: Yes (Hospitalization, Other)
  Sender: FDA-Public Use
  Company Number: US-ABBVIE-19K-163-2905312-00

PATIENT
  Sex: Female
  Weight: 61.29 kg

DRUGS (1)
  1. HUMIRA [Suspect]
     Active Substance: ADALIMUMAB
     Indication: CROHN^S DISEASE
     Dosage: CITRATE FREE
     Route: 058

REACTIONS (6)
  - Exostosis [Recovered/Resolved]
  - Gastrointestinal fistula [Recovering/Resolving]
  - Arthritis [Recovered/Resolved]
  - Sleep disorder [Recovered/Resolved]
  - Hyperchlorhydria [Recovering/Resolving]
  - Bursitis [Recovered/Resolved]

NARRATIVE: CASE EVENT DATE: 2019
